FAERS Safety Report 16625618 (Version 2)
Quarter: 2019Q3

REPORT INFORMATION
  Report Type: Report from Study
  Country: None (occurrence: DE)
  Receive Date: 20190724
  Receipt Date: 20190731
  Transmission Date: 20191004
  Serious: Yes (Hospitalization, Other)
  Sender: FDA-Public Use
  Company Number: DE-ABBVIE-19K-062-2860383-00

PATIENT
  Age: 81 Year
  Sex: Male

DRUGS (6)
  1. RAMIPRIL. [Concomitant]
     Active Substance: RAMIPRIL
     Indication: PRODUCT USED FOR UNKNOWN INDICATION
  2. LANTUS [Concomitant]
     Active Substance: INSULIN GLARGINE
     Indication: PRODUCT USED FOR UNKNOWN INDICATION
     Dosage: ACCORDING TO BLOOD SUGAR VALUES
     Route: 058
  3. DUODOPA [Suspect]
     Active Substance: CARBIDOPA\LEVODOPA
     Indication: PARKINSON^S DISEASE
     Dosage: MD 13 ML; CRD 3ML/HR; ED 1.5 ML/HR
     Route: 050
     Dates: start: 20190704, end: 201907
  4. QUETIAPIN [Concomitant]
     Active Substance: QUETIAPINE
     Indication: PRODUCT USED FOR UNKNOWN INDICATION
  5. LISPRO INSULIN [Concomitant]
     Active Substance: INSULIN LISPRO
     Indication: PRODUCT USED FOR UNKNOWN INDICATION
     Route: 058
  6. DUODOPA [Suspect]
     Active Substance: CARBIDOPA\LEVODOPA
     Route: 050
     Dates: start: 201907

REACTIONS (2)
  - Seizure [Not Recovered/Not Resolved]
  - Seizure [Recovered/Resolved]

NARRATIVE: CASE EVENT DATE: 20190719
